FAERS Safety Report 5498030-4 (Version None)
Quarter: 2007Q4

REPORT INFORMATION
  Report Type: 
  Country: None (occurrence: None)
  Receive Date: 20071025
  Receipt Date: 20071015
  Transmission Date: 20080405
  Serious: Yes (Hospitalization)
  Sender: FDA-Public Use
  Company Number: CH-ASTRAZENECA-2007SE05661

PATIENT
  Age: 73 Year
  Sex: Female

DRUGS (8)
  1. BLOPRESS PLUS [Suspect]
     Indication: DRUG USE FOR UNKNOWN INDICATION
     Dosage: CANDESARTAN 8 MG / HYDROCHLOROTHIAZIDE 12.5 MG
     Route: 048
     Dates: end: 20060301
  2. TEGRETOL [Interacting]
     Indication: TRIGEMINAL NEURALGIA
     Route: 048
     Dates: end: 20060301
  3. SINTROM [Concomitant]
     Route: 048
  4. PANTOPRAZOLE SODIUM [Concomitant]
     Route: 048
  5. PONSTAN [Concomitant]
     Route: 048
  6. ELTROXIN [Concomitant]
     Route: 048
  7. SYMFONA [Concomitant]
     Route: 048
  8. SOTALOL HCL [Concomitant]
     Route: 048

REACTIONS (4)
  - BLOOD OSMOLARITY DECREASED [None]
  - CONFUSIONAL STATE [None]
  - DRUG INTERACTION [None]
  - HYPONATRAEMIA [None]
